FAERS Safety Report 10006697 (Version 2)
Quarter: 2014Q2

REPORT INFORMATION
  Report Type: Spontaneous
  Country: US (occurrence: US)
  Receive Date: 20140313
  Receipt Date: 20140610
  Transmission Date: 20141212
  Serious: No
  Sender: FDA-Public Use
  Company Number: US-PFIZER INC-2014073307

PATIENT
  Sex: Female

DRUGS (4)
  1. CELEBREX [Suspect]
     Dosage: UNK
  2. EFFEXOR XR [Suspect]
     Dosage: UNK
  3. NEURONTIN [Suspect]
     Dosage: UNK
  4. TOVIAZ [Suspect]
     Dosage: UNK

REACTIONS (1)
  - Aphonia [Unknown]
